FAERS Safety Report 8271912-6 (Version None)
Quarter: 2012Q2

REPORT INFORMATION
  Report Type: 
  Country: None (occurrence: None)
  Receive Date: 20120410
  Receipt Date: 20120404
  Transmission Date: 20120825
  Serious: No
  Sender: FDA-Public Use
  Company Number: US-PFIZER INC-2012085805

PATIENT

DRUGS (3)
  1. CELEXA [Concomitant]
     Dosage: UNK, AS NEEDED
  2. ALSUMA [Suspect]
     Indication: MIGRAINE
     Dosage: 6 MG, 1X/DAY
     Route: 058
     Dates: start: 20120301, end: 20120301
  3. OMEPRAZOLE [Concomitant]
     Dosage: UNK, AS NEEDED

REACTIONS (3)
  - HEADACHE [None]
  - HYPERTENSION [None]
  - TACHYCARDIA [None]
